FAERS Safety Report 8618161-7 (Version None)
Quarter: 2012Q3

REPORT INFORMATION
  Report Type: 
  Country: None (occurrence: None)
  Receive Date: 20120824
  Receipt Date: 20120503
  Transmission Date: 20120928
  Serious: Yes (Hospitalization)
  Sender: FDA-Public Use
  Company Number: US-ASTRAZENECA-2012SE19921

PATIENT
  Age: 71 Year
  Sex: Female
  Weight: 65.8 kg

DRUGS (10)
  1. SYMBICORT [Suspect]
     Dosage: 160/4.5 MCG TWO PUFFS, TWO TIMES A DAY
     Route: 055
     Dates: start: 20100101
  2. PULMICORT FLEXHALER [Suspect]
     Indication: CHRONIC OBSTRUCTIVE PULMONARY DISEASE
     Route: 055
     Dates: start: 20120101
  3. BLOOD PRESSURE PILLS [Concomitant]
  4. PULMICORT FLEXHALER [Suspect]
     Indication: BRONCHITIS CHRONIC
     Route: 055
     Dates: start: 20120101
  5. SYMBICORT [Suspect]
     Dosage: 160/4.5 MCG TWO PUFFS, TWO TIMES A DAY
     Route: 055
     Dates: start: 20100101
  6. PAIN MEDICATION [Concomitant]
  7. SYMBICORT [Suspect]
     Indication: CHRONIC OBSTRUCTIVE PULMONARY DISEASE
     Dosage: 160/4.5 MCG UNKNOWN
     Route: 055
  8. PLAVIX [Concomitant]
  9. LASIX [Concomitant]
  10. SYMBICORT [Suspect]
     Indication: BRONCHITIS CHRONIC
     Dosage: 160/4.5 MCG UNKNOWN
     Route: 055

REACTIONS (2)
  - BRONCHITIS [None]
  - OFF LABEL USE [None]
